FAERS Safety Report 4793765-0 (Version None)
Quarter: 2005Q4

REPORT INFORMATION
  Report Type: 
  Country: None (occurrence: None)
  Receive Date: 20051011
  Receipt Date: 20051003
  Transmission Date: 20060501
  Serious: Yes (Other)
  Sender: FDA-Public Use
  Company Number: IS-JNJFOC-20051000972

PATIENT
  Sex: Female

DRUGS (6)
  1. REMICADE [Suspect]
     Route: 042
  2. REMICADE [Suspect]
     Indication: RHEUMATOID ARTHRITIS
     Route: 042
  3. PLAQUENIL [Concomitant]
     Route: 048
  4. METHOTREXATE [Concomitant]
     Route: 065
  5. WYETH L [Concomitant]
     Route: 030
  6. PREDNISOLONE [Concomitant]
     Route: 048

REACTIONS (8)
  - CHILLS [None]
  - INFUSION RELATED REACTION [None]
  - MALAISE [None]
  - NAUSEA [None]
  - PAIN [None]
  - PYREXIA [None]
  - TENSION HEADACHE [None]
  - VOMITING [None]
